FAERS Safety Report 9835950 (Version 1)
Quarter: 2014Q1

REPORT INFORMATION
  Report Type: Spontaneous
  Country: IT (occurrence: IT)
  Receive Date: 20140122
  Receipt Date: 20140122
  Transmission Date: 20141002
  Serious: Yes (Hospitalization)
  Sender: FDA-Public Use
  Company Number: IT-ACTAVIS-2014-00413

PATIENT
  Age: 83 Year
  Sex: Male

DRUGS (11)
  1. CLOPIDOGREL (UNKNOWN) [Suspect]
     Indication: MYOCARDIAL ISCHAEMIA
     Dosage: 75 MG, DAILY
     Route: 048
     Dates: start: 20130201, end: 20131006
  2. CLOPIDOGREL (UNKNOWN) [Suspect]
     Dosage: 75 MG, DAILY
     Route: 048
     Dates: start: 20131009
  3. DICLOFENAC (UNKNOWN) [Suspect]
     Indication: ARTHRALGIA
     Dosage: UNK
     Route: 065
     Dates: start: 20131003, end: 20131005
  4. CARDIOASPIRIN [Suspect]
     Indication: THROMBOSIS PROPHYLAXIS
     Dosage: 100 MG, DAILY
     Route: 048
     Dates: start: 20130201, end: 20131006
  5. CARDIOASPIRIN [Suspect]
     Dosage: 100 MG, DAILY
     Route: 048
     Dates: start: 20131009
  6. MUSCORIL [Concomitant]
     Indication: PRODUCT USED FOR UNKNOWN INDICATION
     Dosage: UNK
     Route: 030
     Dates: start: 20131003, end: 20131005
  7. PANTOPRAZOLE [Concomitant]
     Indication: PRODUCT USED FOR UNKNOWN INDICATION
     Dosage: 40 MG, UNK
     Route: 048
  8. LISINOPRIL [Concomitant]
     Indication: HYPERTENSION
     Dosage: 20 MG, UNK
     Route: 048
  9. ATORVASTATIN [Concomitant]
     Indication: PRODUCT USED FOR UNKNOWN INDICATION
     Dosage: 80 MG, UNK
     Route: 048
  10. NITROGLYCERIN [Concomitant]
     Indication: PRODUCT USED FOR UNKNOWN INDICATION
     Dosage: 15 MG, UNK
     Route: 062
  11. NITROGLYCERIN [Concomitant]
     Dosage: 5 MG, UNK
     Route: 062

REACTIONS (1)
  - Rectal haemorrhage [Recovering/Resolving]
